FAERS Safety Report 17913686 (Version 2)
Quarter: 2020Q2

REPORT INFORMATION
  Report Type: Report from Study
  Country: CN (occurrence: CN)
  Receive Date: 20200618
  Receipt Date: 20200625
  Transmission Date: 20200714
  Serious: Yes (Other)
  Sender: FDA-Public Use
  Company Number: NVSC2020CN170259

PATIENT
  Age: 59 Year
  Sex: Male

DRUGS (3)
  1. VOTRIENT [Suspect]
     Active Substance: PAZOPANIB HYDROCHLORIDE
     Dosage: 800 MG
     Route: 048
     Dates: start: 20190122
  2. VOTRIENT [Suspect]
     Active Substance: PAZOPANIB HYDROCHLORIDE
     Indication: PRODUCT USED FOR UNKNOWN INDICATION
     Dosage: 800 MG
     Route: 048
     Dates: start: 20181228, end: 20181229
  3. VOTRIENT [Suspect]
     Active Substance: PAZOPANIB HYDROCHLORIDE
     Dosage: UNK MG
     Route: 048
     Dates: start: 20181230, end: 20190121

REACTIONS (7)
  - Pericoronitis [Unknown]
  - Diarrhoea [Unknown]
  - Skin lesion [Unknown]
  - Liver injury [Unknown]
  - Blood uric acid increased [Unknown]
  - Hair colour changes [Unknown]
  - Nausea [Unknown]

NARRATIVE: CASE EVENT DATE: 201902
